FAERS Safety Report 17125711 (Version 1)
Quarter: 2019Q4

REPORT INFORMATION
  Report Type: Other
  Country: GB (occurrence: GB)
  Receive Date: 20191208
  Receipt Date: 20191208
  Transmission Date: 20200122
  Serious: Yes (Death)
  Sender: FDA-Public Use
  Company Number: GB-DEXPHARM-20191098

PATIENT
  Age: 4 Year
  Sex: Female

DRUGS (8)
  1. DEXAMETHASONE. [Suspect]
     Active Substance: DEXAMETHASONE
     Indication: CHEMOTHERAPY
     Dosage: DAILY DOSE: 6.5 ?G/M2 MICROGRAM(S)/SQ. METER EVERY DAYS
  2. L-ASPARGINASE [Suspect]
     Active Substance: ASPARAGINASE
  3. GENTAMYCIN [Concomitant]
     Active Substance: GENTAMICIN
  4. MEROPENEM. [Concomitant]
     Active Substance: MEROPENEM
  5. VINCRISTINE [Suspect]
     Active Substance: VINCRISTINE
     Indication: CHEMOTHERAPY
     Dosage: DAILY DOSE: 1.5 MG/M2 MILLIGRAM(S)/SQ. METER EVERY WEEKS
  6. FLUCLOXACILLIN [Concomitant]
     Active Substance: FLUCLOXACILLIN
  7. FLUCONAZOLE. [Concomitant]
     Active Substance: FLUCONAZOLE
  8. CEFTAZIMIDE [Concomitant]

REACTIONS (3)
  - Neurological decompensation [Fatal]
  - Cellulitis [Unknown]
  - Urine output decreased [Unknown]
